FAERS Safety Report 9401032 (Version 1)
Quarter: 2013Q3

REPORT INFORMATION
  Report Type: Spontaneous
  Country: GB (occurrence: GB)
  Receive Date: 20130715
  Receipt Date: 20130715
  Transmission Date: 20140515
  Serious: Yes (Other)
  Sender: FDA-Public Use
  Company Number: GB-MERCK-1307GBR004195

PATIENT
  Age: 68 Year
  Sex: Male
  Weight: 64 kg

DRUGS (14)
  1. CARBIDOPA (+) LEVODOPA [Suspect]
     Dosage: UNK
     Route: 048
     Dates: start: 20130312
  2. ACYCLOVIR [Concomitant]
     Dosage: UNK
     Dates: start: 20130403
  3. ALLOPURINOL [Concomitant]
     Dosage: UNK
     Dates: start: 20130403
  4. AMLODIPINE [Concomitant]
     Dosage: UNK
     Dates: start: 20130403
  5. ASPIRIN [Concomitant]
     Dosage: UNK
     Dates: start: 20130403
  6. ATORVASTATIN [Concomitant]
     Dosage: UNK
     Dates: start: 20130312
  7. BISOPROLOL [Concomitant]
     Dosage: UNK
     Dates: start: 20130403
  8. CODEINE PHOSPHATE [Concomitant]
     Dosage: UNK
     Dates: start: 20130508, end: 20130607
  9. ENALAPRIL MALEATE [Concomitant]
     Dosage: UNK
     Route: 048
     Dates: start: 20130403, end: 20130529
  10. FINASTERIDE [Concomitant]
     Dosage: UNK
     Route: 048
     Dates: start: 20130403, end: 20130529
  11. PSYLLIUM HUSK [Concomitant]
     Dosage: UNK
     Dates: start: 20130403, end: 20130503
  12. OMEPRAZOLE [Concomitant]
     Dosage: UNK
     Route: 048
     Dates: start: 20130312
  13. ROPINIROLE [Concomitant]
     Dosage: UNK
     Dates: start: 20130312
  14. TAMSULOSIN HYDROCHLORIDE [Concomitant]
     Dosage: UNK
     Dates: start: 20130403

REACTIONS (2)
  - Gastrointestinal inflammation [Unknown]
  - Change of bowel habit [Recovering/Resolving]
